FAERS Safety Report 8309720-X (Version None)
Quarter: 2012Q2

REPORT INFORMATION
  Report Type: 
  Country: None (occurrence: None)
  Receive Date: 20120424
  Receipt Date: 20120411
  Transmission Date: 20120825
  Serious: No
  Sender: FDA-Public Use
  Company Number: ADR-2012-00734

PATIENT

DRUGS (1)
  1. BACLOFEN [Suspect]
     Indication: MUSCLE SPASTICITY

REACTIONS (2)
  - QUADRIPLEGIA [None]
  - HEMIPLEGIA [None]
